FAERS Safety Report 8394892-1 (Version None)
Quarter: 2012Q2

REPORT INFORMATION
  Report Type: 
  Country: None (occurrence: None)
  Receive Date: 20120530
  Receipt Date: 20120521
  Transmission Date: 20120825
  Serious: Yes (Other)
  Sender: FDA-Public Use
  Company Number: US-ASTRAZENECA-2012SE31419

PATIENT
  Age: 63 Year
  Sex: Female
  Weight: 79.4 kg

DRUGS (6)
  1. LEVOTHYROXINE SODIUM [Concomitant]
  2. HYDROCODONE BITARTRATE [Concomitant]
  3. SEROQUEL [Suspect]
     Indication: DEPRESSION
     Route: 048
     Dates: start: 20040101
  4. SIMVASTATIN [Concomitant]
  5. NEXIUM [Suspect]
     Indication: GASTROOESOPHAGEAL REFLUX DISEASE
     Route: 048
  6. NEURONTIN [Concomitant]

REACTIONS (3)
  - HERPES ZOSTER [None]
  - OSTEOARTHRITIS [None]
  - CATARACT [None]
